FAERS Safety Report 4525319-5 (Version None)
Quarter: 2005Q1

REPORT INFORMATION
  Report Type: 
  Country: None (occurrence: None)
  Receive Date: 20041116
  Receipt Date: 20040817
  Transmission Date: 20050727
  Serious: No
  Sender: FDA-Public Use
  Company Number: S04-USA-05749-01

PATIENT
  Age: 75 Year
  Sex: Female

DRUGS (13)
  1. NAMENDA [Suspect]
     Indication: VASCULAR DEMENTIA
     Dosage: 5 MG QD; PO
     Route: 048
     Dates: start: 20040811, end: 20040817
  2. ARICEPT [Suspect]
     Indication: VASCULAR DEMENTIA
     Dosage: 10 MG QD; PO
     Route: 048
     Dates: start: 20040501, end: 20040817
  3. GABITRIL [Concomitant]
  4. COZAAR [Concomitant]
  5. RESTORIL [Concomitant]
  6. PREDNISONE TAB [Concomitant]
  7. NIFEDIPINE [Concomitant]
  8. TOPROL-XL [Concomitant]
  9. METHOTREXATE [Concomitant]
  10. PLAVIX [Concomitant]
  11. HYDROCHLOROTHIAZIDE [Concomitant]
  12. FOLIC ACID [Concomitant]
  13. OSCAL (CALCIUM CARBONATE) [Concomitant]

REACTIONS (6)
  - BLOOD PRESSURE SYSTOLIC INCREASED [None]
  - EUPHORIC MOOD [None]
  - FLIGHT OF IDEAS [None]
  - LOGORRHOEA [None]
  - PSYCHOMOTOR HYPERACTIVITY [None]
  - THYROXINE INCREASED [None]
